FAERS Safety Report 7349889 (Version 7)
Quarter: 2013Q3

REPORT INFORMATION
  Report Type: Spontaneous
  Country: US (occurrence: US)
  Receive Date: 20100409
  Receipt Date: 20130703
  Transmission Date: 20140515
  Serious: Yes (Disabling, Other)
  Sender: FDA-Public Use
  Company Number: US-BAYER-201018291NA

PATIENT
  Age: 58 Year
  Sex: Female

DRUGS (13)
  1. MAGNEVIST [Suspect]
     Indication: ANGIOGRAM
     Dosage: POTENTIAL LOT NUMBERS 24388B, 32407B, 32406B
     Dates: start: 20040901, end: 20040901
  2. MAGNEVIST [Suspect]
     Indication: ANGIOGRAM
     Dosage: POTENTIAL LOT NUMBERS 32407B, 34420A
     Dates: start: 20050504, end: 20050504
  3. MAGNEVIST [Suspect]
     Indication: BLINDNESS UNILATERAL
  4. EPOETIN NOS [Concomitant]
     Dosage: DOSE: 5,000U/2X PER WEEK
     Dates: start: 200405
  5. BENEXOL [Concomitant]
  6. DORIXINA [Concomitant]
  7. CAPOTEN [Concomitant]
  8. WARFARIN [Concomitant]
  9. TECHNETIUM (99M TC) DTPA [Concomitant]
     Dates: start: 20010904, end: 20010904
  10. TECHNETIUM (99M TC) DTPA [Concomitant]
     Dates: start: 20010807, end: 20010807
  11. TECHNETIUM (99M TC) DTPA [Concomitant]
     Dates: start: 20030711, end: 20030711
  12. TECHNETIUM TC 99M [Concomitant]
     Dates: start: 20050513, end: 20050513
  13. TECHNETIUM TC 99M [Concomitant]
     Dates: start: 20080213, end: 20080213

REACTIONS (34)
  - Nephrogenic systemic fibrosis [Not Recovered/Not Resolved]
  - Skin fibrosis [Not Recovered/Not Resolved]
  - Pain in extremity [Not Recovered/Not Resolved]
  - General physical health deterioration [Not Recovered/Not Resolved]
  - Deformity [Not Recovered/Not Resolved]
  - Scar [Not Recovered/Not Resolved]
  - Skin induration [Not Recovered/Not Resolved]
  - Purpura [Not Recovered/Not Resolved]
  - Extremity contracture [Not Recovered/Not Resolved]
  - Pain in extremity [Not Recovered/Not Resolved]
  - Joint range of motion decreased [Not Recovered/Not Resolved]
  - Muscular weakness [Not Recovered/Not Resolved]
  - Skin tightness [Not Recovered/Not Resolved]
  - Skin hypertrophy [Not Recovered/Not Resolved]
  - Burning sensation [Not Recovered/Not Resolved]
  - Local swelling [Not Recovered/Not Resolved]
  - Limb deformity [Not Recovered/Not Resolved]
  - Joint stiffness [Not Recovered/Not Resolved]
  - Skin tightness [Not Recovered/Not Resolved]
  - Skin discolouration [Not Recovered/Not Resolved]
  - Pruritus [Not Recovered/Not Resolved]
  - Fibrosis [Not Recovered/Not Resolved]
  - Musculoskeletal stiffness [Not Recovered/Not Resolved]
  - Myalgia [Not Recovered/Not Resolved]
  - Arthralgia [Not Recovered/Not Resolved]
  - Mobility decreased [Not Recovered/Not Resolved]
  - Bone pain [Not Recovered/Not Resolved]
  - Skin burning sensation [Not Recovered/Not Resolved]
  - Pain of skin [Not Recovered/Not Resolved]
  - Abasia [Not Recovered/Not Resolved]
  - Gastrointestinal disorder [Not Recovered/Not Resolved]
  - Eye disorder [None]
  - Visual impairment [None]
  - Retinal vein occlusion [None]
